FAERS Safety Report 4566878-6 (Version None)
Quarter: 2005Q1

REPORT INFORMATION
  Report Type: 
  Country: None (occurrence: None)
  Receive Date: 20050201
  Receipt Date: 20020520
  Transmission Date: 20050727
  Serious: Yes (Other)
  Sender: FDA-Public Use
  Company Number: US-BRISTOL-MYERS SQUIBB COMPANY-11883642

PATIENT
  Sex: Male

DRUGS (1)
  1. STADOL [Suspect]
     Dosage: 4 PRESCRIPTIONS: 2.5ML X 3
     Route: 045
     Dates: start: 19961201, end: 19970301

REACTIONS (2)
  - DEPENDENCE [None]
  - DRUG WITHDRAWAL SYNDROME [None]
